FAERS Safety Report 8374967-3 (Version None)
Quarter: 2012Q2

REPORT INFORMATION
  Report Type: 
  Country: None (occurrence: None)
  Receive Date: 20120521
  Receipt Date: 20120515
  Transmission Date: 20120825
  Serious: Yes (Other)
  Sender: FDA-Public Use
  Company Number: US-CELGENEUS-163-21880-12022392

PATIENT
  Sex: Male
  Weight: 84.898 kg

DRUGS (18)
  1. FLUOCINOLONE ACETONIDE [Concomitant]
     Dosage: .01 PERCENT
     Route: 061
  2. MELOXICAM [Concomitant]
     Route: 065
  3. VELCADE [Concomitant]
     Route: 065
     Dates: end: 20110101
  4. DOXAZOSIN MESYLATE [Concomitant]
     Dosage: 1
     Route: 048
  5. LOPROX [Concomitant]
     Route: 065
  6. FINASTERIDE [Concomitant]
     Dosage: 1
     Route: 048
  7. VITAMIN B6 [Concomitant]
     Dosage: 1
     Route: 048
  8. PROCRIT [Concomitant]
     Route: 065
  9. ASPIRIN [Concomitant]
     Dosage: 1
     Route: 048
  10. CICLOPIROX [Concomitant]
     Dosage: TO SCALP
     Route: 061
  11. SULFAMETHOXAZOLE AND TRIMETHOPRIM [Concomitant]
     Dosage: 800-160MG
     Route: 048
  12. REVLIMID [Suspect]
     Indication: MULTIPLE MYELOMA
     Dosage: 10 MILLIGRAM
     Route: 048
     Dates: start: 20081201, end: 20090101
  13. REVLIMID [Suspect]
     Dosage: 5 MILLIGRAM
     Route: 048
     Dates: start: 20090601, end: 20090101
  14. FOLIC ACID [Concomitant]
     Dosage: 1
     Route: 048
  15. PRILOSEC [Concomitant]
     Dosage: 1
     Route: 048
  16. VITAMIN B-12 [Concomitant]
     Route: 065
  17. REVLIMID [Suspect]
     Dosage: 5 MILLIGRAM
     Route: 048
     Dates: start: 20091112
  18. POLYETHYLENE GLYCOL [Concomitant]
     Dosage: 1 CAPFUL IN 8OZ WATER
     Route: 048

REACTIONS (6)
  - PLATELET COUNT DECREASED [None]
  - NEUTROPENIA [None]
  - MULTIPLE MYELOMA [None]
  - WHITE BLOOD CELL COUNT DECREASED [None]
  - PANCYTOPENIA [None]
  - SQUAMOUS CELL CARCINOMA OF SKIN [None]
